FAERS Safety Report 6126184-5 (Version None)
Quarter: 2009Q1

REPORT INFORMATION
  Report Type: 
  Country: None (occurrence: None)
  Receive Date: 20090320
  Receipt Date: 20090313
  Transmission Date: 20090719
  Serious: Yes (Death)
  Sender: FDA-Public Use
  Company Number: B0562566A

PATIENT
  Age: 23 Year
  Sex: Female

DRUGS (1)
  1. FLOLAN [Suspect]
     Indication: ARTERIAL DISORDER
     Route: 065

REACTIONS (2)
  - AUTOIMMUNE DISORDER [None]
  - DRUG EXPOSURE DURING PREGNANCY [None]
